FAERS Safety Report 16821888 (Version 3)
Quarter: 2021Q4

REPORT INFORMATION
  Report Type: Report from Study
  Country: JP (occurrence: JP)
  Receive Date: 20190918
  Receipt Date: 20211006
  Transmission Date: 20220303
  Serious: Yes (Death, Life-Threatening, Hospitalization, Other)
  Sender: FDA-Public Use
  Company Number: JP-ASTELLAS-2019JP005094

PATIENT
  Age: 85 Year
  Sex: Female
  Weight: 49 kg

DRUGS (14)
  1. GILTERITINIB [Suspect]
     Active Substance: GILTERITINIB
     Indication: Acute myeloid leukaemia refractory
     Route: 048
     Dates: start: 20190221, end: 20190321
  2. GILTERITINIB [Suspect]
     Active Substance: GILTERITINIB
     Route: 048
     Dates: start: 20190404, end: 20190415
  3. GILTERITINIB [Suspect]
     Active Substance: GILTERITINIB
     Route: 048
     Dates: start: 20190424, end: 20190509
  4. GILTERITINIB [Suspect]
     Active Substance: GILTERITINIB
     Route: 048
     Dates: start: 20190510, end: 20190615
  5. GILTERITINIB [Suspect]
     Active Substance: GILTERITINIB
     Route: 048
     Dates: start: 20190621, end: 20190628
  6. GILTERITINIB [Suspect]
     Active Substance: GILTERITINIB
     Route: 048
     Dates: start: 20190629, end: 20190708
  7. DIETARY SUPPLEMENT\PROBIOTICS [Suspect]
     Active Substance: DIETARY SUPPLEMENT\PROBIOTICS
     Indication: Product used for unknown indication
     Dosage: UNK UNK, UNKNOWN FREQ.
     Route: 048
  8. MEROPENEM [Concomitant]
     Active Substance: MEROPENEM
     Indication: Escherichia bacteraemia
     Dosage: UNK UNK, UNKNOWN FREQ.
     Route: 041
  9. CEFEPIME HYDROCHLORIDE [Concomitant]
     Active Substance: CEFEPIME HYDROCHLORIDE
     Indication: Bifidobacterium infection
     Dosage: UNK UNK, UNKNOWN FREQ.
     Route: 041
  10. TEICOPLANIN [Concomitant]
     Active Substance: TEICOPLANIN
     Indication: Enterococcal infection
     Dosage: UNK UNK, UNKNOWN FREQ.
     Route: 041
  11. PREDONINE [Concomitant]
     Active Substance: PREDNISOLONE
     Indication: Rash
     Dosage: UNK UNK, UNKNOWN FREQ.
     Route: 041
  12. PREDONINE [Concomitant]
     Active Substance: PREDNISOLONE
     Indication: Rash
     Dosage: UNK UNK, UNKNOWN FREQ.
     Route: 048
  13. FUROSEMIDE [Concomitant]
     Active Substance: FUROSEMIDE
     Indication: Pseudoaldosteronism
     Dosage: UNK UNK, UNKNOWN FREQ.
     Route: 042
  14. SAMSCA [Concomitant]
     Active Substance: TOLVAPTAN
     Indication: Pseudoaldosteronism
     Dosage: UNK UNK, UNKNOWN FREQ.
     Route: 048

REACTIONS (11)
  - Bronchopulmonary aspergillosis [Not Recovered/Not Resolved]
  - Rash [Recovering/Resolving]
  - Hepatic function abnormal [Not Recovered/Not Resolved]
  - Acute myeloid leukaemia [Fatal]
  - Myelosuppression [Not Recovered/Not Resolved]
  - Escherichia bacteraemia [Recovered/Resolved]
  - Bifidobacterium infection [Recovered/Resolved]
  - Enterococcal infection [Recovered/Resolved]
  - Renal disorder [Not Recovered/Not Resolved]
  - Subdural haematoma [Not Recovered/Not Resolved]
  - Pseudoaldosteronism [Not Recovered/Not Resolved]

NARRATIVE: CASE EVENT DATE: 20190321
